FAERS Safety Report 6500342-X (Version None)
Quarter: 2009Q4

REPORT INFORMATION
  Report Type: 
  Country: None (occurrence: None)
  Receive Date: 20091216
  Receipt Date: 20091211
  Transmission Date: 20100525
  Serious: Yes (Other)
  Sender: FDA-Public Use
  Company Number: BE-ROCHE-674468

PATIENT
  Age: 26 Year
  Sex: Male
  Weight: 75 kg

DRUGS (2)
  1. TAMIFLU [Suspect]
     Indication: INFLUENZA
     Route: 048
     Dates: start: 20091119, end: 20091121
  2. INSULIN [Concomitant]
     Dosage: FREQUENCY: DAILY
     Route: 058

REACTIONS (2)
  - FACE OEDEMA [None]
  - URTICARIA [None]
